FAERS Safety Report 8469494-9 (Version None)
Quarter: 2012Q2

REPORT INFORMATION
  Report Type: 
  Country: None (occurrence: None)
  Receive Date: 20120626
  Receipt Date: 20120619
  Transmission Date: 20120825
  Serious: Yes (Other)
  Sender: FDA-Public Use
  Company Number: US-UCBSA-060057

PATIENT

DRUGS (1)
  1. CIMZIA [Suspect]
     Dosage: ONE DOSE OF CIMZIA BUT NO MORE

REACTIONS (3)
  - URTICARIA [None]
  - OEDEMA MOUTH [None]
  - SKIN LESION [None]
